FAERS Safety Report 16656901 (Version 3)
Quarter: 2020Q1

REPORT INFORMATION
  Report Type: Report from Study
  Country: None (occurrence: BR)
  Receive Date: 20190801
  Receipt Date: 20200221
  Transmission Date: 20200409
  Serious: Yes (Hospitalization, Disabling, Other)
  Sender: FDA-Public Use
  Company Number: BR-ABBVIE-19K-020-2873792-00

PATIENT
  Age: 48 Year
  Sex: Female
  Weight: 50 kg

DRUGS (1)
  1. HUMIRA [Suspect]
     Active Substance: ADALIMUMAB
     Indication: ANKYLOSING SPONDYLITIS
     Route: 058
     Dates: start: 20180201, end: 20190715

REACTIONS (15)
  - Mobility decreased [Recovering/Resolving]
  - Headache [Recovered/Resolved]
  - Pain [Unknown]
  - Spinal cord compression [Unknown]
  - Muscle spasms [Recovering/Resolving]
  - Bacterial infection [Not Recovered/Not Resolved]
  - Vomiting [Recovered/Resolved]
  - Loss of consciousness [Recovered/Resolved]
  - Gait inability [Not Recovered/Not Resolved]
  - Malaise [Recovered/Resolved]
  - Nausea [Recovered/Resolved]
  - Blood calcium decreased [Unknown]
  - Bone density increased [Unknown]
  - Movement disorder [Not Recovered/Not Resolved]
  - Post procedural complication [Unknown]

NARRATIVE: CASE EVENT DATE: 201808
